FAERS Safety Report 15961626 (Version 1)
Quarter: 2019Q1

REPORT INFORMATION
  Report Type: Spontaneous
  Country: SE (occurrence: SE)
  Receive Date: 20190214
  Receipt Date: 20190214
  Transmission Date: 20190417
  Serious: Yes (Life-Threatening)
  Sender: FDA-Public Use
  Company Number: SE-ASTRAZENECA-2019SE23963

PATIENT
  Age: 62 Year
  Sex: Male

DRUGS (2)
  1. VENTILASTIN [Concomitant]
     Active Substance: ALBUTEROL SULFATE
     Indication: PRODUCT USED FOR UNKNOWN INDICATION
     Dosage: UNK
  2. NOVOPULMON E NOVOLIZER [Suspect]
     Active Substance: BUDESONIDE
     Indication: ASTHMA
     Dosage: 200 MICROGRAM, BID, 400 UG/INHAL DAILY
     Route: 055
     Dates: end: 20190130

REACTIONS (3)
  - Foreign body in respiratory tract [Recovered/Resolved]
  - Complication associated with device [Recovered/Resolved]
  - Suffocation feeling [Recovered/Resolved]

NARRATIVE: CASE EVENT DATE: 201811
